FAERS Safety Report 8234725-7 (Version None)
Quarter: 2012Q1

REPORT INFORMATION
  Report Type: 
  Country: None (occurrence: None)
  Receive Date: 20120326
  Receipt Date: 20120322
  Transmission Date: 20120608
  Serious: No
  Sender: FDA-Public Use
  Company Number: US-PFIZER INC-2012051590

PATIENT
  Sex: Male
  Weight: 107 kg

DRUGS (1)
  1. FLECTOR [Suspect]
     Indication: BACK PAIN
     Dosage: ONCE DAILY
     Route: 061
     Dates: start: 20120224, end: 20120225

REACTIONS (1)
  - SKIN EXFOLIATION [None]
